FAERS Safety Report 9148278 (Version 1)
Quarter: 2013Q1

REPORT INFORMATION
  Report Type: Spontaneous
  Country: MX (occurrence: MX)
  Receive Date: 20130308
  Receipt Date: 20130308
  Transmission Date: 20140127
  Serious: Yes (Other)
  Sender: FDA-Public Use
  Company Number: MX-AMGEN-MEXSP2013014956

PATIENT
  Sex: 0

DRUGS (1)
  1. ARANESP [Suspect]
     Indication: PRODUCT USED FOR UNKNOWN INDICATION
     Dosage: 500 MUG, UNK

REACTIONS (4)
  - Pneumonia [Unknown]
  - Renal failure [Unknown]
  - Haemoglobin abnormal [Unknown]
  - Drug ineffective [Unknown]
